FAERS Safety Report 18957322 (Version 1)
Quarter: 2021Q1

REPORT INFORMATION
  Report Type: Report from Study
  Country: US (occurrence: US)
  Receive Date: 20210302
  Receipt Date: 20210302
  Transmission Date: 20210420
  Serious: Yes (Death, Hospitalization, Other)
  Sender: FDA-Public Use
  Company Number: US-ASTRAZENECA-2021A071486

PATIENT
  Age: 32467 Day
  Sex: Male
  Weight: 61.7 kg

DRUGS (2)
  1. TAGRISSO [Suspect]
     Active Substance: OSIMERTINIB
     Indication: LUNG NEOPLASM MALIGNANT
     Route: 048
     Dates: start: 202011, end: 20201210
  2. LASIX [Concomitant]
     Active Substance: FUROSEMIDE

REACTIONS (9)
  - Pleural effusion [Not Recovered/Not Resolved]
  - Dysphagia [Not Recovered/Not Resolved]
  - Drug ineffective [Not Recovered/Not Resolved]
  - Dyspnoea [Unknown]
  - Haemoglobin [Unknown]
  - Pulmonary oedema [Not Recovered/Not Resolved]
  - Mobility decreased [Unknown]
  - Oral pain [Recovered/Resolved]
  - Oncologic complication [Fatal]

NARRATIVE: CASE EVENT DATE: 20201128
